FAERS Safety Report 16288920 (Version 1)
Quarter: 2019Q2

REPORT INFORMATION
  Report Type: Report from Study
  Country: US (occurrence: US)
  Receive Date: 20190509
  Receipt Date: 20190509
  Transmission Date: 20190711
  Serious: Yes (Hospitalization, Other)
  Sender: FDA-Public Use
  Company Number: US-ROCHE-2309885

PATIENT
  Age: 44 Year
  Sex: Female

DRUGS (32)
  1. BENADRYL [Concomitant]
     Active Substance: DIPHENHYDRAMINE HYDROCHLORIDE
  2. TYLOXAPOL [Concomitant]
     Active Substance: TYLOXAPOL
  3. PREDNISONE. [Concomitant]
     Active Substance: PREDNISONE
  4. TACROLIMUS. [Concomitant]
     Active Substance: TACROLIMUS
  5. METHYLPREDNISOLONE. [Concomitant]
     Active Substance: METHYLPREDNISOLONE
  6. ONDANSETRON [Concomitant]
     Active Substance: ONDANSETRON
  7. HYDROMORPHONE [Concomitant]
     Active Substance: HYDROMORPHONE
  8. MACROGOL [Concomitant]
     Active Substance: POLYETHYLENE GLYCOLS
  9. RINGER LACTATE B. BRAUN [Concomitant]
  10. SALINE [SODIUM CHLORIDE] [Concomitant]
     Active Substance: SODIUM CHLORIDE
  11. SODIUM CHLORIDE. [Concomitant]
     Active Substance: SODIUM CHLORIDE
  12. AFRIN [OXYMETAZOLINE HYDROCHLORIDE] [Concomitant]
  13. METOPROLOL. [Concomitant]
     Active Substance: METOPROLOL
  14. MYCOPHENOLATE MOFETIL. [Suspect]
     Active Substance: MYCOPHENOLATE MOFETIL
     Indication: DELAYED GRAFT FUNCTION
     Route: 065
  15. DIPHENHYDRAMINE. [Concomitant]
     Active Substance: DIPHENHYDRAMINE
  16. FLONASE [Concomitant]
     Active Substance: FLUTICASONE PROPIONATE
  17. TIZANIDINE. [Concomitant]
     Active Substance: TIZANIDINE
  18. CEFAZOLINE [CEFAZOLIN] [Concomitant]
     Active Substance: CEFAZOLIN
  19. CALCIUM ACETATE. [Concomitant]
     Active Substance: CALCIUM ACETATE
  20. HYDROMORPHONE HYDROCHLORIDE. [Concomitant]
     Active Substance: HYDROMORPHONE HYDROCHLORIDE
  21. DOCUSATE [Concomitant]
     Active Substance: DOCUSATE
  22. SENSIPAR [Concomitant]
     Active Substance: CINACALCET HYDROCHLORIDE
  23. BASILIXIMAB [Concomitant]
     Active Substance: BASILIXIMAB
  24. FUROSEMIDE. [Concomitant]
     Active Substance: FUROSEMIDE
  25. HEPARIN [Concomitant]
     Active Substance: HEPARIN SODIUM
  26. FAMOTIDINE. [Concomitant]
     Active Substance: FAMOTIDINE
  27. LACTATED RINGERS SOLUTION [Concomitant]
     Active Substance: CALCIUM CHLORIDE\POTASSIUM CHLORIDE\SODIUM CHLORIDE\SODIUM LACTATE
  28. ATOVAQUONE. [Concomitant]
     Active Substance: ATOVAQUONE
  29. FILGRASTIM [Concomitant]
     Active Substance: FILGRASTIM
  30. SODIUM BICARBONATE. [Concomitant]
     Active Substance: SODIUM BICARBONATE
  31. LISINOPRIL. [Concomitant]
     Active Substance: LISINOPRIL
  32. PANTOPRAZOLE [Concomitant]
     Active Substance: PANTOPRAZOLE

REACTIONS (7)
  - Viral upper respiratory tract infection [Recovered/Resolved]
  - Urosepsis [Recovered/Resolved]
  - Acute kidney injury [Recovered/Resolved]
  - Catheter site infection [Recovered/Resolved]
  - Delayed graft function [Recovered/Resolved]
  - Viraemia [Not Recovered/Not Resolved]
  - Vaginal haemorrhage [Recovered/Resolved with Sequelae]

NARRATIVE: CASE EVENT DATE: 20180106
